FAERS Safety Report 7968540-6 (Version None)
Quarter: 2011Q4

REPORT INFORMATION
  Report Type: 
  Country: None (occurrence: None)
  Receive Date: 20111209
  Receipt Date: 20111130
  Transmission Date: 20120403
  Serious: Yes (Hospitalization)
  Sender: FDA-Public Use
  Company Number: FR-JNJFOC-20111201725

PATIENT
  Sex: Female

DRUGS (7)
  1. IRBESARTAN [Suspect]
     Indication: HYPERTENSION
     Route: 048
     Dates: end: 20110922
  2. ACETAMINOPHEN [Concomitant]
     Route: 065
  3. DURAGESIC-100 [Suspect]
     Indication: PAIN
     Route: 062
     Dates: end: 20110901
  4. ALLOPURINOL [Concomitant]
     Route: 065
  5. MEMANTINE HYDROCHLORIDE [Concomitant]
     Route: 065
  6. ARANESP [Concomitant]
     Route: 065
  7. EXELON [Concomitant]
     Route: 065

REACTIONS (8)
  - RENAL FAILURE ACUTE [None]
  - HYPOXIA [None]
  - HYPERKALAEMIA [None]
  - HYPERCAPNIA [None]
  - BLOOD CREATININE INCREASED [None]
  - BRADYPNOEA [None]
  - FALL [None]
  - DISTURBANCE IN ATTENTION [None]
